FAERS Safety Report 9507471 (Version 2)
Quarter: 2013Q3

REPORT INFORMATION
  Report Type: Spontaneous
  Country: DE (occurrence: DE)
  Receive Date: 20130909
  Receipt Date: 20130909
  Transmission Date: 20140515
  Serious: Yes (Other)
  Sender: FDA-Public Use
  Company Number: DE-009507513-1306DEU003874

PATIENT
  Age: 10 Year
  Sex: Male

DRUGS (6)
  1. REBETOL [Suspect]
     Indication: HEPATITIS E
     Dosage: 15MG/KG BODYWEIGHT
     Route: 048
     Dates: start: 20120105
  2. TACROLIMUS [Concomitant]
     Indication: LIVER TRANSPLANT
     Dosage: UNK
  3. PREDNISOLONE [Concomitant]
     Indication: LIVER TRANSPLANT
     Dosage: 5 MG, QD
  4. L-THYROXIN [Concomitant]
     Indication: HYPOTHYROIDISM
     Dosage: UNK
  5. BICANORM [Concomitant]
     Indication: RENAL FAILURE
     Dosage: 1 G, BID
  6. RAMIPRIL [Concomitant]
     Indication: HYPERTENSION
     Dosage: UNK

REACTIONS (2)
  - Anaemia [Recovering/Resolving]
  - Transfusion [Unknown]
